FAERS Safety Report 24108900 (Version 5)
Quarter: 2025Q3

REPORT INFORMATION
  Report Type: Report from Study
  Country: CA (occurrence: CA)
  Receive Date: 20240718
  Receipt Date: 20250708
  Transmission Date: 20251020
  Serious: Yes (Hospitalization, Other)
  Sender: CELLTRION
  Company Number: CA-CELLTRION INC.-2023CA005847

PATIENT

DRUGS (8)
  1. ADALIMUMAB-AATY [Suspect]
     Active Substance: ADALIMUMAB-AATY
     Indication: Hidradenitis
     Dosage: 40 MG WEEKLY STARTING WEEK 4/ 1 EVERY 1 WEEK
     Route: 058
     Dates: start: 20230210, end: 20230314
  2. ADALIMUMAB-AATY [Suspect]
     Active Substance: ADALIMUMAB-AATY
     Dosage: 40 MG WEEKLY/ 1 EVERY 1 WEEK
     Route: 058
     Dates: start: 202309
  3. ADALIMUMAB-AATY [Suspect]
     Active Substance: ADALIMUMAB-AATY
     Dosage: 40 MG EVERY 1 WEEK (MAINTENANCE)
     Route: 058
     Dates: start: 202412
  4. PERINDOPRIL [Concomitant]
     Active Substance: PERINDOPRIL
     Indication: Product used for unknown indication
     Route: 065
  5. METOPROLOL [Concomitant]
     Active Substance: METOPROLOL
     Indication: Product used for unknown indication
     Route: 065
  6. ASPIRIN [Concomitant]
     Active Substance: ASPIRIN
  7. ROSUVASTATIN [Concomitant]
     Active Substance: ROSUVASTATIN
  8. DUTASTERIDE [Concomitant]
     Active Substance: DUTASTERIDE
     Indication: Prostatomegaly

REACTIONS (7)
  - Prostatomegaly [Not Recovered/Not Resolved]
  - Sepsis [Not Recovered/Not Resolved]
  - Furuncle [Not Recovered/Not Resolved]
  - Device issue [Not Recovered/Not Resolved]
  - Product availability issue [Not Recovered/Not Resolved]
  - Therapy interrupted [Not Recovered/Not Resolved]
  - Drug dose omission by device [Not Recovered/Not Resolved]

NARRATIVE: CASE EVENT DATE: 20230310
